FAERS Safety Report 11981727 (Version 2)
Quarter: 2016Q4

REPORT INFORMATION
  Report Type: Spontaneous
  Country: US (occurrence: US)
  Receive Date: 20160131
  Receipt Date: 20161111
  Transmission Date: 20170206
  Serious: No
  Sender: FDA-Public Use
  Company Number: US-CELGENEUS-USA-2016015330

PATIENT
  Age: 63 Year
  Sex: Male

DRUGS (1)
  1. OTEZLA [Suspect]
     Active Substance: APREMILAST
     Indication: PSORIASIS
     Dosage: 60 MILLIGRAM
     Route: 048
     Dates: start: 20160109

REACTIONS (4)
  - Abdominal discomfort [Unknown]
  - Weight decreased [Unknown]
  - Nausea [Unknown]
  - Dyspepsia [Unknown]

NARRATIVE: CASE EVENT DATE: 2016
